FAERS Safety Report 20719296 (Version 4)
Quarter: 2023Q2

REPORT INFORMATION
  Report Type: Report from Study
  Country: US (occurrence: US)
  Receive Date: 20220418
  Receipt Date: 20230615
  Transmission Date: 20230722
  Serious: Yes (Other)
  Sender: FDA-Public Use
  Company Number: US-VERTEX PHARMACEUTICALS-2021-004547

PATIENT
  Age: 29 Year
  Sex: Female

DRUGS (5)
  1. TRIKAFTA [Suspect]
     Active Substance: ELEXACAFTOR\IVACAFTOR\TEZACAFTOR
     Indication: Cystic fibrosis
     Dosage: FREQ UNKNOWN
     Route: 048
     Dates: start: 20191121, end: 20210224
  2. TRIKAFTA [Suspect]
     Active Substance: ELEXACAFTOR\IVACAFTOR\TEZACAFTOR
     Dosage: FREQ UNK
     Route: 048
     Dates: start: 20210719
  3. TRIKAFTA [Suspect]
     Active Substance: ELEXACAFTOR\IVACAFTOR\TEZACAFTOR
     Dosage: 1 BLUE PILL ON DAY 1 AND 2 ORANGE TABS ON DAY 2, REPEAT
     Route: 048
     Dates: start: 202201, end: 20221102
  4. TRIKAFTA [Suspect]
     Active Substance: ELEXACAFTOR\IVACAFTOR\TEZACAFTOR
     Dosage: 1 ORANGE TAB A DAY, THEN 1 ORANGE TAB NEXT DAY, THEN 1 BLUE TAB DAY AFTER
     Route: 048
     Dates: start: 2022, end: 2023
  5. TRIKAFTA [Suspect]
     Active Substance: ELEXACAFTOR\IVACAFTOR\TEZACAFTOR
     Dosage: 2 ORANGE TABS, STOP TAKING EVENING DOSE
     Route: 048
     Dates: start: 2023

REACTIONS (4)
  - Hepatitis [Unknown]
  - Hepatic enzyme increased [Unknown]
  - Alopecia [Recovering/Resolving]
  - Acne [Unknown]

NARRATIVE: CASE EVENT DATE: 20210701
